FAERS Safety Report 10037604 (Version 1)
Quarter: 2014Q1

REPORT INFORMATION
  Report Type: Spontaneous
  Country: US (occurrence: None)
  Receive Date: 20140306
  Receipt Date: 20140306
  Transmission Date: 20141002
  Serious: Yes (Other)
  Sender: FDA-Public Use
  Company Number: 163-21880-13083372

PATIENT
  Age: 72 Year
  Sex: Male
  Weight: 98.9 kg

DRUGS (5)
  1. REVLIMID [Suspect]
     Indication: PLASMA CELL MYELOMA
     Route: 048
     Dates: start: 201008
  2. CHILD ASPIRIN(CHEWABLE TABLET) [Concomitant]
  3. WARFARIN SODIUM(WARFARIN SODIUM)(TABLETS) [Concomitant]
  4. CITALOPRAM HBR(CITALOPRAM HYDROBROMIDE)(TABLETS) [Concomitant]
  5. LYRICA(PREGABALIN)(CAPSULES) [Concomitant]

REACTIONS (5)
  - Asthenia [None]
  - Abdominal pain [None]
  - Cough [None]
  - Oropharyngeal pain [None]
  - Fatigue [None]
